FAERS Safety Report 19486455 (Version 2)
Quarter: 2021Q3

REPORT INFORMATION
  Report Type: Spontaneous
  Country: US (occurrence: US)
  Receive Date: 20210702
  Receipt Date: 20210922
  Transmission Date: 20211014
  Serious: No
  Sender: FDA-Public Use
  Company Number: US-SA-2021SA217135

PATIENT
  Age: 41 Year
  Sex: Male

DRUGS (1)
  1. AUBAGIO [Suspect]
     Active Substance: TERIFLUNOMIDE
     Indication: MULTIPLE SCLEROSIS
     Dosage: 14 MG, QD
     Route: 048
     Dates: start: 20200221

REACTIONS (6)
  - Fall [Unknown]
  - Alopecia [Unknown]
  - Mobility decreased [Unknown]
  - Bladder disorder [Unknown]
  - Fatigue [Unknown]
  - Product dose omission issue [Unknown]
